FAERS Safety Report 9106396 (Version 6)
Quarter: 2018Q1

REPORT INFORMATION
  Report Type: Report from Study
  Country: FR (occurrence: FR)
  Receive Date: 20130221
  Receipt Date: 20180313
  Transmission Date: 20180509
  Serious: Yes (Hospitalization)
  Sender: FDA-Public Use
  Company Number: FR-ROCHE-1189454

PATIENT
  Age: 8 Year
  Sex: Male

DRUGS (31)
  1. DOXORUBICIN [Suspect]
     Active Substance: DOXORUBICIN
     Route: 042
     Dates: start: 20130101, end: 20130101
  2. CYCLOPHOSPHAMIDE. [Suspect]
     Active Substance: CYCLOPHOSPHAMIDE
     Indication: BURKITT^S LEUKAEMIA
     Route: 042
     Dates: start: 20121017, end: 20121020
  3. ETOPOSIDE. [Suspect]
     Active Substance: ETOPOSIDE
     Dosage: 150 MG/M2
     Route: 042
     Dates: start: 20130128, end: 20130130
  4. LEVOFOLINATE [Concomitant]
     Active Substance: LEVOLEUCOVORIN CALCIUM
     Route: 042
     Dates: start: 20130101, end: 20130103
  5. RITUXIMAB. [Suspect]
     Active Substance: RITUXIMAB
     Indication: B-CELL LYMPHOMA
     Route: 042
     Dates: start: 20121016, end: 20121016
  6. METHOTREXATE. [Suspect]
     Active Substance: METHOTREXATE
     Indication: BURKITT^S LEUKAEMIA
     Route: 042
     Dates: start: 20121016, end: 20121016
  7. METHOTREXATE. [Suspect]
     Active Substance: METHOTREXATE
     Route: 042
     Dates: start: 20121231, end: 20121231
  8. CYTARABINE. [Suspect]
     Active Substance: CYTARABINE
     Indication: BURKITT^S LEUKAEMIA
     Route: 042
     Dates: start: 20121120, end: 20121124
  9. PREDNISOLONE. [Concomitant]
     Active Substance: PREDNISOLONE
     Route: 065
     Dates: start: 20121016, end: 20121020
  10. ONDANSETRON [Concomitant]
     Active Substance: ONDANSETRON
     Route: 042
     Dates: start: 20121231, end: 20130103
  11. METHOTREXATE. [Suspect]
     Active Substance: METHOTREXATE
     Dosage: CYCLE 3.
     Route: 042
     Dates: start: 20121103, end: 20121103
  12. VINCRISTINE SULFATE. [Suspect]
     Active Substance: VINCRISTINE SULFATE
     Indication: BURKITT^S LEUKAEMIA
     Route: 042
     Dates: start: 20121016, end: 20121016
  13. CYCLOPHOSPHAMIDE. [Suspect]
     Active Substance: CYCLOPHOSPHAMIDE
     Route: 042
     Dates: start: 20121104, end: 20121107
  14. CYCLOPHOSPHAMIDE. [Suspect]
     Active Substance: CYCLOPHOSPHAMIDE
     Route: 042
     Dates: start: 20130101, end: 20130102
  15. CYTARABINE. [Suspect]
     Active Substance: CYTARABINE
     Route: 042
     Dates: start: 20121120, end: 20121123
  16. CYTARABINE. [Suspect]
     Active Substance: CYTARABINE
     Dosage: 50 MG/M2
     Route: 042
     Dates: start: 20130128, end: 20130201
  17. ATARAX [Concomitant]
     Active Substance: HYDROXYZINE HYDROCHLORIDE
     Route: 065
     Dates: start: 20121024, end: 20121025
  18. NALBUPHINE [Concomitant]
     Active Substance: NALBUPHINE
     Route: 042
     Dates: start: 20121023, end: 20121024
  19. NALBUPHINE [Concomitant]
     Active Substance: NALBUPHINE
     Route: 042
     Dates: start: 20121231
  20. FOLINIC ACID [Concomitant]
     Active Substance: LEUCOVORIN
     Route: 065
     Dates: start: 20121017, end: 20121019
  21. ETOPOSIDE. [Suspect]
     Active Substance: ETOPOSIDE
     Indication: BURKITT^S LEUKAEMIA
     Route: 042
     Dates: start: 20121120, end: 20121123
  22. ONDANSETRON [Concomitant]
     Active Substance: ONDANSETRON
     Route: 042
     Dates: start: 20130128, end: 20130130
  23. RITUXIMAB. [Suspect]
     Active Substance: RITUXIMAB
     Indication: BURKITT^S LEUKAEMIA
     Route: 042
     Dates: start: 20121014, end: 20121014
  24. RITUXIMAB. [Suspect]
     Active Substance: RITUXIMAB
     Dosage: CYCLE 3.
     Route: 042
     Dates: start: 20121101, end: 20121103
  25. VINCRISTINE SULFATE. [Suspect]
     Active Substance: VINCRISTINE SULFATE
     Route: 042
     Dates: start: 20121231, end: 20121231
  26. DOXORUBICIN [Suspect]
     Active Substance: DOXORUBICIN
     Indication: BURKITT^S LEUKAEMIA
     Route: 042
     Dates: start: 20121017, end: 20121017
  27. NALBUPHINE [Concomitant]
     Active Substance: NALBUPHINE
     Route: 065
     Dates: start: 20121111, end: 20121113
  28. PREDNISOLONE. [Concomitant]
     Active Substance: PREDNISOLONE
     Route: 065
     Dates: start: 20121009
  29. RITUXIMAB. [Suspect]
     Active Substance: RITUXIMAB
     Route: 042
     Dates: start: 20121119, end: 20121119
  30. DOXORUBICIN [Suspect]
     Active Substance: DOXORUBICIN
     Dosage: CYCLE 3.
     Route: 042
     Dates: start: 20121104, end: 20121104
  31. MORPHINE [Concomitant]
     Active Substance: MORPHINE
     Route: 065
     Dates: start: 20121024

REACTIONS (9)
  - Staphylococcal sepsis [Recovered/Resolved]
  - Febrile bone marrow aplasia [Recovered/Resolved]
  - Pyelonephritis acute [Recovered/Resolved]
  - Neutropenic colitis [Recovered/Resolved]
  - Staphylococcal sepsis [Recovered/Resolved]
  - Febrile neutropenia [Recovered/Resolved]
  - Abdominal pain [Recovered/Resolved]
  - Febrile neutropenia [Recovered/Resolved]
  - Mucosal inflammation [Recovered/Resolved]

NARRATIVE: CASE EVENT DATE: 20121023
